FAERS Safety Report 9857044 (Version 1)
Quarter: 2014Q1

REPORT INFORMATION
  Report Type: Spontaneous
  Country: CO (occurrence: CO)
  Receive Date: 20140130
  Receipt Date: 20140130
  Transmission Date: 20141002
  Serious: Yes (Other)
  Sender: FDA-Public Use
  Company Number: CO-PFIZER INC-2014026897

PATIENT
  Sex: Male

DRUGS (1)
  1. BABY ADVIL [Suspect]
     Route: 048

REACTIONS (2)
  - Hypothermia [Unknown]
  - Drug dispensing error [Unknown]
